FAERS Safety Report 10094586 (Version 1)
Quarter: 2014Q2

REPORT INFORMATION
  Report Type: Spontaneous
  Country: US (occurrence: US)
  Receive Date: 20140422
  Receipt Date: 20140422
  Transmission Date: 20141212
  Serious: No
  Sender: FDA-Public Use
  Company Number: US-PFIZER INC-2014110403

PATIENT
  Sex: Male

DRUGS (1)
  1. LYRICA [Suspect]
     Dosage: UNK
     Dates: start: 2013

REACTIONS (5)
  - Chest pain [Unknown]
  - Dyspnoea [Unknown]
  - Heart rate increased [Unknown]
  - Feeling abnormal [Unknown]
  - Drug intolerance [Unknown]
